FAERS Safety Report 6234696-9 (Version None)
Quarter: 2009Q2

REPORT INFORMATION
  Report Type: 
  Country: None (occurrence: None)
  Receive Date: 20090615
  Receipt Date: 20090313
  Transmission Date: 20091009
  Serious: No
  Sender: FDA-Public Use
  Company Number: DSA_33405_2009

PATIENT
  Age: 54 Year
  Sex: Female

DRUGS (3)
  1. XENAZINE [Suspect]
     Indication: HUNTINGTON'S CHOREA
     Dosage: 25 MG BID, ONCE IN MORNING AND ONCE AT NIGHT
  2. AMANTADINE HCL [Concomitant]
  3. ZOLOFT [Concomitant]

REACTIONS (1)
  - FATIGUE [None]
